FAERS Safety Report 17399243 (Version 1)
Quarter: 2020Q1

REPORT INFORMATION
  Report Type: Spontaneous
  Country: US (occurrence: US)
  Receive Date: 20200211
  Receipt Date: 20200211
  Transmission Date: 20200409
  Serious: No
  Sender: FDA-Public Use
  Company Number: US-UNITED THERAPEUTICS-UNT-2020-001996

PATIENT
  Age: 50 Year
  Sex: Female
  Weight: 72.56 kg

DRUGS (11)
  1. ZICAM [OXYMETAZOLINE HYDROCHLORIDE] [Concomitant]
     Indication: NASOPHARYNGITIS
     Dosage: Q8H, PRN
     Route: 048
     Dates: start: 2014
  2. ORENITRAM [Suspect]
     Active Substance: TREPROSTINIL
     Indication: PULMONARY ARTERIAL HYPERTENSION
     Dosage: 0.25 MG, TID
     Route: 048
     Dates: start: 20191221
  3. SILDENAFIL. [Concomitant]
     Active Substance: SILDENAFIL
     Indication: PULMONARY ARTERIAL HYPERTENSION
     Dosage: 20 MG, TID
     Route: 048
     Dates: start: 2015
  4. TRAMADOL HCL [Concomitant]
     Active Substance: TRAMADOL HYDROCHLORIDE
     Indication: ARTHRALGIA
     Dosage: 50 MG, PRN
     Route: 048
     Dates: start: 2015
  5. PROBIOTIC [BIFIDOBACTERIUM BIFIDUM;BIFIDOBACT [Concomitant]
     Indication: SUPPLEMENTATION THERAPY
     Dosage: 50 BILLION, QD
     Route: 048
     Dates: start: 2019
  6. ELDERBERRY [SAMBUCUS NIGRA] [Concomitant]
     Indication: NASOPHARYNGITIS
     Dosage: 2 GUMMIES, PRN
     Route: 048
     Dates: start: 2017
  7. FLEXERIL [CEFIXIME] [Concomitant]
     Active Substance: CEFIXIME
     Indication: MUSCLE SPASMS
     Dosage: 10 MG, PRN
     Route: 048
     Dates: start: 2018
  8. VITAMIN C [Concomitant]
     Active Substance: ASCORBIC ACID
     Indication: NASOPHARYNGITIS
     Dosage: 4 TAB, QD
     Route: 048
     Dates: start: 2018
  9. CELLCEPT [Concomitant]
     Active Substance: MYCOPHENOLATE MOFETIL\MYCOPHENOLATE MOFETIL HYDROCHLORIDE
     Indication: IMMUNOSUPPRESSANT DRUG THERAPY
     Dosage: 1500 MG, BID
     Route: 048
     Dates: start: 2015
  10. PROTONIX [OMEPRAZOLE] [Concomitant]
     Active Substance: OMEPRAZOLE
     Indication: GASTROOESOPHAGEAL REFLUX DISEASE
     Dosage: 40 MG, TID
     Route: 048
     Dates: start: 2000
  11. MVI [ASCORBIC ACID;DEXPANTHENOL;ERGOCALCIFERO [Concomitant]
     Indication: SUPPLEMENTATION THERAPY
     Dosage: UNK
     Route: 048

REACTIONS (1)
  - Pain [Recovered/Resolved]

NARRATIVE: CASE EVENT DATE: 20200201
